FAERS Safety Report 18247467 (Version 1)
Quarter: 2020Q3

REPORT INFORMATION
  Report Type: Spontaneous
  Country: IT (occurrence: IT)
  Receive Date: 20200909
  Receipt Date: 20200909
  Transmission Date: 20201103
  Serious: Yes (Other)
  Sender: FDA-Public Use
  Company Number: IT-TEVA-2020-IT-1824642

PATIENT
  Age: 25 Year
  Sex: Male

DRUGS (1)
  1. IMATINIB. [Suspect]
     Active Substance: IMATINIB MESYLATE
     Indication: CHRONIC MYELOID LEUKAEMIA
     Dosage: 400 MILLIGRAM DAILY;
     Route: 065

REACTIONS (2)
  - Optic neuritis [Recovered/Resolved]
  - Blindness [Recovered/Resolved]
